FAERS Safety Report 23226394 (Version 2)
Quarter: 2023Q4

REPORT INFORMATION
  Report Type: Report from Study
  Country: US (occurrence: US)
  Receive Date: 20231124
  Receipt Date: 20231227
  Transmission Date: 20240109
  Serious: Yes (Hospitalization)
  Sender: FDA-Public Use
  Company Number: US-002147023-NVSC2023US250673

PATIENT
  Sex: Female

DRUGS (1)
  1. KISQALI [Suspect]
     Active Substance: RIBOCICLIB
     Indication: Breast cancer female
     Dosage: 600 MG, QD (DAILY FOR 21 DAYS ON, 7 DAYS OFF)
     Route: 048

REACTIONS (4)
  - Adverse drug reaction [Unknown]
  - Pneumonia [Unknown]
  - Rash [Unknown]
  - Intentional overdose [Unknown]
